FAERS Safety Report 22598910 (Version 1)
Quarter: 2023Q2

REPORT INFORMATION
  Report Type: Spontaneous
  Country: US (occurrence: US)
  Receive Date: 20230614
  Receipt Date: 20230614
  Transmission Date: 20230721
  Serious: Yes (Hospitalization)
  Sender: FDA-Public Use
  Company Number: US-MYLANLABS-2023M1061166

PATIENT
  Age: 55 Year
  Sex: Female

DRUGS (3)
  1. MAGNESIUM SULFATE [Interacting]
     Active Substance: MAGNESIUM SULFATE
     Indication: Mineral supplementation
     Dosage: 24 TIMES; TOTAL DOSE OF 64G
     Route: 065
  2. SODIUM CITRATE [Interacting]
     Active Substance: SODIUM CITRATE
     Indication: Anticoagulant therapy
     Dosage: UNK
     Route: 065
  3. CALCIUM GLUCONATE [Concomitant]
     Active Substance: CALCIUM GLUCONATE
     Indication: Mineral supplementation
     Dosage: 60 MILLILITER, QH (INFUSION)
     Route: 042

REACTIONS (3)
  - Hypomagnesaemia [Recovered/Resolved]
  - Citrate toxicity [Unknown]
  - Drug interaction [Unknown]
